FAERS Safety Report 20741073 (Version 2)
Quarter: 2022Q2

REPORT INFORMATION
  Report Type: Report from Study
  Country: CH (occurrence: None)
  Receive Date: 20220422
  Receipt Date: 20220505
  Transmission Date: 20220721
  Serious: Yes (Death, Hospitalization)
  Sender: FDA-Public Use
  Company Number: CH-ROCHE-3077524

PATIENT
  Age: 44 Year
  Sex: Female

DRUGS (2)
  1. ATEZOLIZUMAB [Suspect]
     Active Substance: ATEZOLIZUMAB
     Indication: Non-small cell lung cancer
     Dosage: MOST RECENT DOSE OF PRIOR TO SAE: 18/MAR/2022
     Route: 041
     Dates: start: 20220223
  2. GEMCITABINE [Suspect]
     Active Substance: GEMCITABINE
     Indication: Non-small cell lung cancer
     Dosage: MOST RECENT DOSE OF PRIOR TO SAE: 18/MAR/2022
     Route: 042
     Dates: start: 20220223

REACTIONS (2)
  - Generalised oedema [Fatal]
  - Disease progression [Fatal]

NARRATIVE: CASE EVENT DATE: 20220412
